FAERS Safety Report 14566667 (Version 1)
Quarter: 2018Q1

REPORT INFORMATION
  Report Type: Spontaneous
  Country: GB (occurrence: GB)
  Receive Date: 20180223
  Receipt Date: 20180223
  Transmission Date: 20180509
  Serious: Yes (Other)
  Sender: FDA-Public Use
  Company Number: GB-EMD SERONO-9012314

PATIENT
  Age: 61 Year
  Sex: Male

DRUGS (3)
  1. REBIF [Suspect]
     Active Substance: INTERFERON BETA-1A
     Indication: MULTIPLE SCLEROSIS
     Dosage: REBIF CARTRIDGES, (6MIU)
     Route: 058
     Dates: start: 20180102, end: 201802
  2. REBIF [Suspect]
     Active Substance: INTERFERON BETA-1A
     Dosage: INCREASED TO UNSPECIFIED DOSE
  3. GABAPENTIN. [Concomitant]
     Active Substance: GABAPENTIN
     Indication: PRODUCT USED FOR UNKNOWN INDICATION

REACTIONS (6)
  - Ill-defined disorder [Unknown]
  - Headache [Unknown]
  - Paralysis [Unknown]
  - Feeling abnormal [Unknown]
  - Dysstasia [Unknown]
  - Mobility decreased [Unknown]

NARRATIVE: CASE EVENT DATE: 2018
